FAERS Safety Report 8376534-4 (Version None)
Quarter: 2012Q2

REPORT INFORMATION
  Report Type: 
  Country: None (occurrence: None)
  Receive Date: 20120522
  Receipt Date: 20120515
  Transmission Date: 20120825
  Serious: Yes (Hospitalization)
  Sender: FDA-Public Use
  Company Number: US-BAYER-2012-049343

PATIENT
  Age: 29 Year
  Sex: Female
  Weight: 98 kg

DRUGS (27)
  1. ZITHROMAX [Concomitant]
     Dosage: 500 MG, UNK
     Dates: start: 20080823
  2. TORADOL [Concomitant]
     Dosage: 60 MG, UNK
     Route: 030
     Dates: start: 20081010
  3. ANTIVERT [Concomitant]
     Dosage: 25 MG, UNK
     Dates: start: 20081010
  4. ADVAIR DISKUS 100/50 [Concomitant]
  5. SPIRIVA [Concomitant]
  6. REMERON [Concomitant]
  7. AMBIEN [Concomitant]
     Dosage: 12.5 MG, EVERY NIGHT
     Dates: start: 20080907
  8. LOPRESSOR [Concomitant]
  9. ZOLOFT [Concomitant]
     Dosage: 50 MG, OM
  10. MELOXICAM [Concomitant]
     Dosage: 15 MG, UNK
  11. NEXIUM [Concomitant]
     Dosage: 40 MG, UNK
  12. XYZAL [Concomitant]
     Dosage: 5 MG, EVERY NIGHT
     Dates: start: 20080907
  13. MIRTAZAPINE [Concomitant]
     Dosage: UNK
     Dates: start: 20080927
  14. ATROVENT [Concomitant]
     Dosage: 0.5 MG, UNK
     Route: 055
     Dates: start: 20081012
  15. REQUIP [Concomitant]
     Dosage: 1 MG, EVERY NIGHT
  16. ALBUTEROL [Concomitant]
     Dosage: UNK
     Dates: start: 20080914
  17. PHENERGAN [Concomitant]
     Dosage: 25 MG, UNK
     Dates: start: 20081012
  18. XOPENEX [Concomitant]
     Dosage: 1.25 MG, UNK
     Route: 055
     Dates: start: 20081012
  19. MOTRIN [Concomitant]
     Dosage: 600 MG, UNK
     Dates: start: 20080812
  20. PROVENTIL [Concomitant]
     Dosage: 2 PUFF(S), UNK
     Dates: start: 20080823
  21. SYMBICORT [Concomitant]
     Dosage: UNK
     Dates: start: 20080927
  22. YAZ [Suspect]
  23. PREDNISONE TAB [Concomitant]
     Dosage: 40 MG, UNK
     Dates: start: 20080816
  24. LAMICTAL [Concomitant]
     Dosage: UNK
     Dates: start: 20080927
  25. TYLENOL W/ CODEINE NO. 3 [Concomitant]
     Dosage: 1 TABLET
     Dates: start: 20081010
  26. ABILIFY [Concomitant]
     Dosage: 5 MG, OM
  27. ACETAMINOPHEN [Concomitant]
     Dosage: 1 G, UNK
     Dates: start: 20080907

REACTIONS (2)
  - PULMONARY EMBOLISM [None]
  - DEEP VEIN THROMBOSIS [None]
